FAERS Safety Report 23342354 (Version 1)
Quarter: 2023Q4

REPORT INFORMATION
  Report Type: Spontaneous
  Country: US (occurrence: None)
  Receive Date: 20231226
  Receipt Date: 20231226
  Transmission Date: 20240110
  Serious: Yes (Hospitalization)
  Sender: FDA-Public Use
  Company Number: None

PATIENT

DRUGS (2)
  1. HYDRALAZINE HCL [Suspect]
     Active Substance: HYDRALAZINE HYDROCHLORIDE
  2. ONDANSETRON [Suspect]
     Active Substance: ONDANSETRON

REACTIONS (6)
  - Product appearance confusion [None]
  - Product barcode issue [None]
  - Product colour issue [None]
  - Product packaging confusion [None]
  - Product preparation error [None]
  - Product label confusion [None]
